FAERS Safety Report 10290050 (Version 1)
Quarter: 2014Q3

REPORT INFORMATION
  Report Type: Spontaneous
  Country: US (occurrence: US)
  Receive Date: 20140710
  Receipt Date: 20140710
  Transmission Date: 20150326
  Serious: Yes (Hospitalization, Other)
  Sender: FDA-Public Use
  Company Number: US-PFIZER INC-2014191588

PATIENT
  Age: 33 Year
  Sex: Male
  Weight: 90.7 kg

DRUGS (7)
  1. LYRICA [Suspect]
     Active Substance: PREGABALIN
     Indication: NEUROPATHY PERIPHERAL
     Dosage: 300 MG, 2X/DAY
     Dates: start: 2013
  2. XANAX [Concomitant]
     Active Substance: ALPRAZOLAM
     Dosage: UNK, 3X/DAY
  3. BACLOFEN. [Concomitant]
     Active Substance: BACLOFEN
     Dosage: UNK, 3X/DAY
  4. MS CONTIN [Concomitant]
     Active Substance: MORPHINE SULFATE
     Dosage: UNK, 2X/DAY
  5. SEROQUEL [Concomitant]
     Active Substance: QUETIAPINE FUMARATE
     Dosage: UNK, DAILY
  6. CYMBALTA [Concomitant]
     Active Substance: DULOXETINE HYDROCHLORIDE
     Dosage: UNK, DAILY
  7. RANITIDINE [Concomitant]
     Active Substance: RANITIDINE\RANITIDINE HYDROCHLORIDE
     Dosage: UNK, 2X/DAY

REACTIONS (5)
  - Pulmonary thrombosis [Unknown]
  - Cough [Unknown]
  - Musculoskeletal disorder [Unknown]
  - Hypoaesthesia [Unknown]
  - Dyspnoea [Unknown]

NARRATIVE: CASE EVENT DATE: 2014
